FAERS Safety Report 7129147-6 (Version None)
Quarter: 2010Q4

REPORT INFORMATION
  Report Type: 
  Country: None (occurrence: None)
  Receive Date: 20101130
  Receipt Date: 20101124
  Transmission Date: 20110411
  Serious: Yes (Life-Threatening, Hospitalization)
  Sender: FDA-Public Use
  Company Number: DZ-ROCHE-744671

PATIENT
  Sex: Female

DRUGS (2)
  1. PEGINTERFERON ALFA-2A [Suspect]
     Dosage: PERMANENTLY DISCONTINUED.
     Route: 065
     Dates: end: 20100131
  2. RIBAVIRIN [Suspect]
     Dosage: PERMANENTLY DISCONTINUED.
     Route: 065
     Dates: end: 20100131

REACTIONS (2)
  - ANAEMIA [None]
  - METRORRHAGIA [None]
